FAERS Safety Report 7431723-8 (Version None)
Quarter: 2011Q2

REPORT INFORMATION
  Report Type: 
  Country: None (occurrence: None)
  Receive Date: 20110422
  Receipt Date: 20110415
  Transmission Date: 20111010
  Serious: Yes (Hospitalization)
  Sender: FDA-Public Use
  Company Number: US-BIOGENIDEC-2011BI007095

PATIENT
  Sex: Female

DRUGS (1)
  1. AVONEX [Suspect]
     Indication: MULTIPLE SCLEROSIS
     Route: 030
     Dates: start: 20020325

REACTIONS (8)
  - HYPERTENSION [None]
  - OVARIAN DISORDER [None]
  - ANAEMIA [None]
  - OVARIAN NEOPLASM [None]
  - MENSTRUATION IRREGULAR [None]
  - MUSCLE SPASMS [None]
  - MENORRHAGIA [None]
  - ASTHENIA [None]
